FAERS Safety Report 9848374 (Version 1)
Quarter: 2013Q4

REPORT INFORMATION
  Report Type: Spontaneous
  Country: US (occurrence: None)
  Receive Date: 20131224
  Receipt Date: 20131224
  Transmission Date: 20140711
  Serious: Yes (Other)
  Sender: FDA-Public Use
  Company Number: PHEH2012US023582

PATIENT
  Age: 68 Year
  Sex: Male
  Weight: 63 kg

DRUGS (1)
  1. EXJADE (*CGP 72670*) DISPERSIBLE TABLET, 500MG [Suspect]
     Indication: IRON OVERLOAD
     Route: 048
     Dates: start: 20121002, end: 20121127

REACTIONS (2)
  - Renal impairment [None]
  - Rash [None]
